FAERS Safety Report 25057823 (Version 1)
Quarter: 2025Q1

REPORT INFORMATION
  Report Type: Report from Study
  Country: US (occurrence: US)
  Receive Date: 20250310
  Receipt Date: 20250310
  Transmission Date: 20250409
  Serious: Yes (Other)
  Sender: BAYER HEALTHCARE LLC
  Company Number: US-BAYER-2025A031809

PATIENT
  Age: 17 Year
  Sex: Female

DRUGS (4)
  1. ASPIRIN [Suspect]
     Active Substance: ASPIRIN
  2. TRANEXAMIC ACID [Suspect]
     Active Substance: TRANEXAMIC ACID
  3. ACETAMINOPHEN [Suspect]
     Active Substance: ACETAMINOPHEN
  4. CAFFEINE [Suspect]
     Active Substance: CAFFEINE

REACTIONS (4)
  - Intentional overdose [None]
  - Toxicity to various agents [None]
  - Nausea [None]
  - Vomiting [None]
